FAERS Safety Report 6779889-7 (Version None)
Quarter: 2010Q2

REPORT INFORMATION
  Report Type: 
  Country: None (occurrence: None)
  Receive Date: 20100618
  Receipt Date: 20100603
  Transmission Date: 20101027
  Serious: Yes (Other)
  Sender: FDA-Public Use
  Company Number: JP-PFIZER INC-2010069527

PATIENT
  Age: 73 Year
  Sex: Male

DRUGS (5)
  1. DALACIN [Suspect]
     Dosage: 150 MG, 4X/DAY
     Route: 048
     Dates: start: 20100517
  2. VITAMEDIN CAPSULE [Suspect]
  3. ALINAMIN [Suspect]
  4. CYANOCOBALAMIN [Suspect]
  5. WARFARIN [Suspect]

REACTIONS (1)
  - CHROMATURIA [None]
